FAERS Safety Report 5385748-7 (Version None)
Quarter: 2007Q3

REPORT INFORMATION
  Report Type: 
  Country: None (occurrence: None)
  Receive Date: 20070712
  Receipt Date: 20070702
  Transmission Date: 20080115
  Serious: Yes (Other)
  Sender: FDA-Public Use
  Company Number: CN-PFIZER INC-2007054665

PATIENT
  Age: 43 Year
  Sex: Male

DRUGS (6)
  1. LIPITOR [Suspect]
     Route: 048
  2. PLAVIX [Concomitant]
     Route: 048
  3. ASPIRIN [Concomitant]
     Route: 048
  4. VITAMIN B [Concomitant]
     Route: 048
  5. CENTRUM [Concomitant]
     Route: 048
  6. ALL OTHER THERAPEUTIC PRODUCTS [Concomitant]
     Route: 048

REACTIONS (2)
  - MOUTH ULCERATION [None]
  - STENT PLACEMENT [None]
